FAERS Safety Report 5184301-8 (Version None)
Quarter: 2006Q4

REPORT INFORMATION
  Report Type: 
  Country: None (occurrence: None)
  Receive Date: 20061220
  Receipt Date: 20060328
  Transmission Date: 20070319
  Serious: No
  Sender: FDA-Public Use
  Company Number: US-GLAXOSMITHKLINE-A0599311A

PATIENT
  Age: 49 Year
  Sex: Male

DRUGS (1)
  1. EQUATE NTS 14MG [Suspect]
     Dates: start: 20060327, end: 20060327

REACTIONS (2)
  - BLOOD PRESSURE INCREASED [None]
  - HEADACHE [None]
